FAERS Safety Report 4337756-2 (Version None)
Quarter: 2004Q2

REPORT INFORMATION
  Report Type: 
  Country: None (occurrence: None)
  Receive Date: 20040408
  Receipt Date: 20040331
  Transmission Date: 20050107
  Serious: No
  Sender: FDA-Public Use
  Company Number: 2004AP02073

PATIENT
  Age: 45 Year
  Sex: Male

DRUGS (7)
  1. TENORMIN [Suspect]
     Dosage: 50 MG DAILY PO
     Route: 048
     Dates: start: 20030801
  2. RENIVACE [Suspect]
     Dosage: 5 MG DAILY PO
     Route: 048
     Dates: start: 19991001
  3. DERMOVATE [Concomitant]
  4. ANTEBATE [Concomitant]
  5. UREPEARL [Concomitant]
  6. BONALFA [Concomitant]
  7. AZELASTINE HCL [Concomitant]

REACTIONS (2)
  - DISTURBANCE IN SEXUAL AROUSAL [None]
  - ERECTILE DYSFUNCTION [None]
